FAERS Safety Report 25750312 (Version 6)
Quarter: 2025Q4

REPORT INFORMATION
  Report Type: Spontaneous
  Country: CA (occurrence: CA)
  Receive Date: 20250902
  Receipt Date: 20251210
  Transmission Date: 20260117
  Serious: Yes (Other)
  Sender: PFIZER
  Company Number: CA-PFIZER INC-202500054503

PATIENT
  Age: 45 Year
  Sex: Female

DRUGS (4)
  1. ABRILADA [Suspect]
     Active Substance: ADALIMUMAB-AFZB
     Indication: Crohn^s disease
     Dosage: 160 MG, AT WEEK 0, WEEK 2 80MG, THEN 40MG EVERY OTHER WEEK STARTING WEEK 4
     Route: 058
     Dates: start: 20250225
  2. ABRILADA [Suspect]
     Active Substance: ADALIMUMAB-AFZB
     Dosage: 160 MG, AT WEEK 0, WEEK 2 80MG, THEN 40MG EVERY OTHER WEEK STARTING WEEK 4
     Route: 058
     Dates: start: 20250312
  3. ABRILADA [Suspect]
     Active Substance: ADALIMUMAB-AFZB
     Dosage: 160 MG, AT WEEK 0, WEEK 2 80MG, THEN 40MG EVERY OTHER WEEK STARTING WEEK 4
     Route: 058
  4. RABEPRAZOLE [Concomitant]
     Active Substance: RABEPRAZOLE
     Dosage: UNK

REACTIONS (36)
  - Uveitis [Unknown]
  - Pyoderma gangrenosum [Unknown]
  - Anal abscess [Unknown]
  - Therapeutic response shortened [Unknown]
  - Chronic sinusitis [Not Recovered/Not Resolved]
  - Pharyngitis [Not Recovered/Not Resolved]
  - Respiratory tract congestion [Unknown]
  - Cough [Unknown]
  - Pharyngeal mass [Not Recovered/Not Resolved]
  - Pharyngeal exudate [Not Recovered/Not Resolved]
  - Anal fissure [Unknown]
  - Aphthous ulcer [Unknown]
  - Erythema nodosum [Unknown]
  - Arthralgia [Unknown]
  - Laryngitis [Not Recovered/Not Resolved]
  - Weight increased [Not Recovered/Not Resolved]
  - Pharyngeal ulceration [Not Recovered/Not Resolved]
  - Condition aggravated [Not Recovered/Not Resolved]
  - Fatigue [Not Recovered/Not Resolved]
  - Somnolence [Not Recovered/Not Resolved]
  - Peripheral swelling [Not Recovered/Not Resolved]
  - Joint swelling [Not Recovered/Not Resolved]
  - Alopecia [Not Recovered/Not Resolved]
  - Paraesthesia [Not Recovered/Not Resolved]
  - Pain in extremity [Not Recovered/Not Resolved]
  - Tremor [Not Recovered/Not Resolved]
  - Hyperhidrosis [Not Recovered/Not Resolved]
  - Anxiety [Not Recovered/Not Resolved]
  - Skin disorder [Unknown]
  - Pain [Unknown]
  - Reflux laryngitis [Unknown]
  - Anaemia [Unknown]
  - Nasopharyngitis [Unknown]
  - Gastrooesophageal reflux disease [Unknown]
  - Pharyngeal cyst [Unknown]
  - Asthenia [Unknown]

NARRATIVE: CASE EVENT DATE: 20250101
